FAERS Safety Report 8104274-5 (Version None)
Quarter: 2012Q1

REPORT INFORMATION
  Report Type: 
  Country: None (occurrence: None)
  Receive Date: 20120130
  Receipt Date: 20120123
  Transmission Date: 20120608
  Serious: No
  Sender: FDA-Public Use
  Company Number: US-BAYER-2012-008405

PATIENT
  Age: 55 Year
  Sex: Female

DRUGS (2)
  1. DOXAZOSIN [Concomitant]
  2. ALEVE (CAPLET) [Suspect]
     Dosage: 2 U, UNK
     Route: 048
     Dates: start: 20120118, end: 20120123

REACTIONS (1)
  - PAIN [None]
